FAERS Safety Report 6122983-4 (Version None)
Quarter: 2009Q1

REPORT INFORMATION
  Report Type: 
  Country: None (occurrence: None)
  Receive Date: 20090318
  Receipt Date: 20080226
  Transmission Date: 20090719
  Serious: No
  Sender: FDA-Public Use
  Company Number: US-AMGEN-KDL267128

PATIENT
  Sex: Female

DRUGS (3)
  1. NEULASTA [Suspect]
     Indication: CHEMOTHERAPY
     Dates: start: 20080207
  2. ADRIAMYCIN RDF [Concomitant]
  3. CYCLOPHOSPHAMIDE [Concomitant]

REACTIONS (5)
  - EAR DISORDER [None]
  - HEADACHE [None]
  - SENSITIVITY OF TEETH [None]
  - SINUS HEADACHE [None]
  - TOOTHACHE [None]
